FAERS Safety Report 13064767 (Version 1)
Quarter: 2016Q4

REPORT INFORMATION
  Report Type: Spontaneous
  Country: AR (occurrence: AR)
  Receive Date: 20161227
  Receipt Date: 20161227
  Transmission Date: 20170207
  Serious: Yes (Other)
  Sender: FDA-Public Use
  Company Number: AR-PFIZER INC-2016593557

PATIENT
  Age: 63 Year
  Sex: Male

DRUGS (2)
  1. PREGABALIN. [Suspect]
     Active Substance: PREGABALIN
     Indication: NEUROPATHY PERIPHERAL
     Dosage: UKN
     Dates: start: 2014
  2. THIOCTIC ACID [Concomitant]
     Active Substance: THIOCTIC ACID
     Dosage: UKN

REACTIONS (5)
  - Paraesthesia [Unknown]
  - Fatigue [Unknown]
  - Abasia [Unknown]
  - Pain [Unknown]
  - Blood creatine phosphokinase increased [Unknown]
